FAERS Safety Report 5452486-1 (Version None)
Quarter: 2007Q3

REPORT INFORMATION
  Report Type: 
  Country: None (occurrence: None)
  Receive Date: 20070914
  Receipt Date: 20070905
  Transmission Date: 20080115
  Serious: Yes (Other)
  Sender: FDA-Public Use
  Company Number: GB-JNJFOC-20070900999

PATIENT
  Sex: Female
  Weight: 46 kg

DRUGS (7)
  1. REMICADE [Suspect]
     Indication: RHEUMATOID ARTHRITIS
     Route: 042
  2. METHOTREXATE [Concomitant]
  3. ALFACALCIDOL [Concomitant]
  4. FERROUS SULFATE TAB [Concomitant]
  5. FOLIC ACID [Concomitant]
  6. RISPERIDONE [Concomitant]
  7. TEMAZEPAM [Concomitant]

REACTIONS (2)
  - ARTHRALGIA [None]
  - JOINT SWELLING [None]
